FAERS Safety Report 20098358 (Version 2)
Quarter: 2021Q4

REPORT INFORMATION
  Report Type: Spontaneous
  Country: CA (occurrence: CA)
  Receive Date: 20211122
  Receipt Date: 20211130
  Transmission Date: 20220303
  Serious: Yes (Other)
  Sender: FDA-Public Use
  Company Number: CA-PFIZER INC-202101565604

PATIENT
  Sex: Male
  Weight: 3 kg

DRUGS (9)
  1. FLUCONAZOLE [Interacting]
     Active Substance: FLUCONAZOLE
     Indication: Liver abscess
     Dosage: 40.5 MG, 1 EVERY 24 HOURS
     Route: 042
  2. MEROPENEM [Interacting]
     Active Substance: MEROPENEM
     Indication: Liver abscess
     Dosage: 90 MG, 1 EVERY 8 HOURS
     Route: 042
  3. PIPERACILLIN SODIUM\TAZOBACTAM SODIUM [Interacting]
     Active Substance: PIPERACILLIN SODIUM\TAZOBACTAM SODIUM
     Indication: Postoperative wound infection
     Dosage: 225 MG, 1 EVERY 8 HOURS
     Route: 042
  4. AMPHOTERICIN B [Interacting]
     Active Substance: AMPHOTERICIN B
     Indication: Liver abscess
     Dosage: 3 MG, 1 EVERY 24 HOURS
     Route: 042
  5. CEFOXITIN [Concomitant]
     Active Substance: CEFOXITIN SODIUM
     Dosage: UNK
  6. DEXMEDETOMIDINE [Concomitant]
     Active Substance: DEXMEDETOMIDINE
     Dosage: UNK
  7. FAMOTIDINE [Concomitant]
     Active Substance: FAMOTIDINE
     Dosage: UNK
  8. LORAZEPAM [Concomitant]
     Active Substance: LORAZEPAM
     Dosage: UNK
  9. VANCOMYCIN [Concomitant]
     Active Substance: VANCOMYCIN
     Dosage: UNK

REACTIONS (6)
  - Neonatal cholestasis [Recovered/Resolved]
  - Drug interaction [Recovered/Resolved]
  - Drug-disease interaction [Recovered/Resolved]
  - Hyperbilirubinaemia neonatal [Recovered/Resolved]
  - Off label use [Unknown]
  - Off label use [Unknown]
